FAERS Safety Report 21730737 (Version 1)
Quarter: 2022Q4

REPORT INFORMATION
  Report Type: Spontaneous
  Country: US (occurrence: US)
  Receive Date: 20221215
  Receipt Date: 20221215
  Transmission Date: 20230112
  Serious: No
  Sender: FDA-Public Use
  Company Number: US-STRIDES ARCOLAB LIMITED-2022SP016419

PATIENT
  Age: 33 Year
  Sex: Female

DRUGS (6)
  1. POTASSIUM CHLORIDE [Suspect]
     Active Substance: POTASSIUM CHLORIDE
     Indication: Gitelman^s syndrome
     Dosage: 40 MILLIEQUIVALENT (FOUR TIMES PER DAY)
     Route: 065
  2. POTASSIUM CHLORIDE [Suspect]
     Active Substance: POTASSIUM CHLORIDE
     Dosage: 200 MILLIEQUIVALENT PER DAY
     Route: 065
  3. MAGNESIUM OXIDE [Suspect]
     Active Substance: MAGNESIUM OXIDE
     Indication: Gitelman^s syndrome
     Dosage: 400 MILLIGRAM (BID)
     Route: 065
  4. SODIUM CHLORIDE [Suspect]
     Active Substance: SODIUM CHLORIDE
     Indication: Gitelman^s syndrome
     Dosage: 1 GRAM (TID)
     Route: 065
  5. MAGNESIUM LACTATE [Suspect]
     Active Substance: MAGNESIUM LACTATE
     Indication: Gitelman^s syndrome
     Dosage: UNK (INITIAL DOSE NOT STATED)
     Route: 065
  6. MAGNESIUM LACTATE [Suspect]
     Active Substance: MAGNESIUM LACTATE
     Dosage: 2672 MILLIGRAM/DAY
     Route: 065

REACTIONS (2)
  - Maternal exposure during pregnancy [Unknown]
  - Off label use [Unknown]
